FAERS Safety Report 6455841-6 (Version None)
Quarter: 2009Q4

REPORT INFORMATION
  Report Type: 
  Country: None (occurrence: None)
  Receive Date: 20091125
  Receipt Date: 20091116
  Transmission Date: 20100525
  Serious: Yes (Hospitalization)
  Sender: FDA-Public Use
  Company Number: GB-RANBAXY-2009RR-29289

PATIENT
  Age: 37 Year
  Sex: Male

DRUGS (4)
  1. AMOXICILLIN [Suspect]
     Indication: INFECTION
  2. PIPERACILLIN AND TAZOBACTAM [Suspect]
     Indication: NEUTROPENIC SEPSIS
  3. METRONIDAZOLE [Concomitant]
     Indication: NEUTROPENIC SEPSIS
  4. GENTAMICIN [Concomitant]
     Indication: NEUTROPENIC SEPSIS

REACTIONS (1)
  - DRUG RASH WITH EOSINOPHILIA AND SYSTEMIC SYMPTOMS [None]
